FAERS Safety Report 9176684 (Version 1)
Quarter: 2013Q1

REPORT INFORMATION
  Report Type: Spontaneous
  Country: US (occurrence: US)
  Receive Date: 20130321
  Receipt Date: 20130321
  Transmission Date: 20140127
  Serious: No
  Sender: FDA-Public Use
  Company Number: US-MYLANLABS-2012S1008145

PATIENT
  Age: 65 Year
  Sex: Female
  Weight: 90.72 kg

DRUGS (2)
  1. SERTRALINE HYDROCHLORIDE [Suspect]
     Indication: POST-TRAUMATIC STRESS DISORDER
     Dates: end: 201203
  2. TEMAZEPAM [Concomitant]
     Indication: SLEEP DISORDER

REACTIONS (12)
  - Body temperature increased [Recovering/Resolving]
  - Binge eating [Recovering/Resolving]
  - Crying [Recovering/Resolving]
  - Nightmare [Recovering/Resolving]
  - Dizziness [Recovering/Resolving]
  - Abdominal pain upper [Recovering/Resolving]
  - Hyperhidrosis [Recovering/Resolving]
  - Chills [Recovering/Resolving]
  - Nocturnal fear [Recovering/Resolving]
  - Formication [Recovering/Resolving]
  - Anaemia [Not Recovered/Not Resolved]
  - Vitamin B1 deficiency [Not Recovered/Not Resolved]
